FAERS Safety Report 15255817 (Version 1)
Quarter: 2018Q3

REPORT INFORMATION
  Report Type: Spontaneous
  Country: GB (occurrence: GB)
  Receive Date: 20180808
  Receipt Date: 20180808
  Transmission Date: 20181010
  Serious: Yes (Other)
  Sender: FDA-Public Use
  Company Number: GB-PFIZER INC-2018312744

PATIENT
  Age: 73 Year
  Sex: Male
  Weight: 86 kg

DRUGS (10)
  1. DOXYCYCLINE MONOHYDRATE [Suspect]
     Active Substance: DOXYCYCLINE
     Dates: start: 20180703
  2. DAKTACORT [Concomitant]
     Active Substance: HYDROCORTISONE\MICONAZOLE NITRATE
     Dosage: 2 DF, 1X/DAY / TO FEET
     Dates: start: 20180521, end: 20180618
  3. FORMOTEROL FUMARATE [Concomitant]
     Active Substance: FORMOTEROL FUMARATE
     Dosage: 2 DF, 1X/DAY
     Route: 055
     Dates: start: 20170307
  4. BETNOVATE [Concomitant]
     Active Substance: BETAMETHASONE
     Dosage: APPLY TO THE AFFECTED AREA(S) ONCE OR TWICE A DAY
     Dates: start: 20180416, end: 20180611
  5. DIPROBASE /01210201/ [Concomitant]
     Dosage: UNK, AS NEEDED
     Dates: start: 20180416, end: 20180426
  6. HYDROXYZINE [Concomitant]
     Active Substance: HYDROXYZINE HYDROCHLORIDE
     Dosage: 1 DF, 1X/DAY / NIGHT
     Dates: start: 20180521, end: 20180618
  7. FUCIBET [Concomitant]
     Dosage: 2 DF, 1X/DAY / TO INFLAMED PATCHES
     Dates: start: 20180607
  8. ZEROBASE /00103901/ [Concomitant]
     Indication: DRY SKIN
     Dosage: UNK, AS NEEDED / APPLY AS OFTEN
     Dates: start: 20180703
  9. SALBUTAMOL [Concomitant]
     Active Substance: ALBUTEROL
     Dosage: 2 DF, AS NEEDED
     Dates: start: 20170307
  10. ATORVASTATIN [Concomitant]
     Active Substance: ATORVASTATIN
     Dosage: 1 DF, 1X/DAY
     Dates: start: 20160106

REACTIONS (2)
  - Arthritis allergic [Recovering/Resolving]
  - Arthritis reactive [Unknown]

NARRATIVE: CASE EVENT DATE: 20180703
